FAERS Safety Report 13621185 (Version 1)
Quarter: 2017Q2

REPORT INFORMATION
  Report Type: Spontaneous
  Country: GB (occurrence: GB)
  Receive Date: 20170607
  Receipt Date: 20170607
  Transmission Date: 20170830
  Serious: Yes (Hospitalization)
  Sender: FDA-Public Use
  Company Number: GB-ACCORD-052179

PATIENT
  Age: 78 Year
  Sex: Male

DRUGS (20)
  1. BETAHISTINE [Concomitant]
     Active Substance: BETAHISTINE
  2. GAVISCON [Concomitant]
     Active Substance: ALUMINUM HYDROXIDE\MAGNESIUM CARBONATE
  3. GLYCERYL TRINITRATE [Concomitant]
     Active Substance: NITROGLYCERIN
  4. BUSPIRONE [Concomitant]
     Active Substance: BUSPIRONE HYDROCHLORIDE
  5. CARBOCYSTEINE [Concomitant]
     Active Substance: CARBOCYSTEINE
  6. SALBUTAMOL [Concomitant]
     Active Substance: ALBUTEROL
  7. SERTRALINE [Suspect]
     Active Substance: SERTRALINE HYDROCHLORIDE
     Indication: PRODUCT USED FOR UNKNOWN INDICATION
     Route: 048
  8. ATORVASTATIN [Concomitant]
     Active Substance: ATORVASTATIN
  9. FINASTERIDE. [Concomitant]
     Active Substance: FINASTERIDE
  10. FLUTICASONE. [Concomitant]
     Active Substance: FLUTICASONE
  11. WARFARIN [Concomitant]
     Active Substance: WARFARIN
  12. LACTULOSE. [Concomitant]
     Active Substance: LACTULOSE
  13. SPIRONOLACTONE. [Concomitant]
     Active Substance: SPIRONOLACTONE
  14. SPIRONOLACTONE. [Suspect]
     Active Substance: SPIRONOLACTONE
     Indication: PRODUCT USED FOR UNKNOWN INDICATION
     Route: 048
     Dates: end: 20170515
  15. NEBIVOLOL. [Concomitant]
     Active Substance: NEBIVOLOL
  16. RANITIDINE. [Concomitant]
     Active Substance: RANITIDINE
  17. BIMATOPROST. [Concomitant]
     Active Substance: BIMATOPROST
  18. BRINZOLAMIDE [Concomitant]
     Active Substance: BRINZOLAMIDE
  19. AMIODARONE [Concomitant]
     Active Substance: AMIODARONE
  20. NICORANDIL [Concomitant]
     Active Substance: NICORANDIL

REACTIONS (1)
  - Hypernatraemia [Recovering/Resolving]
